FAERS Safety Report 8567611 (Version 2)
Quarter: 2013Q1

REPORT INFORMATION
  Report Type: Report from Study
  Country: US (occurrence: US)
  Receive Date: 20120517
  Receipt Date: 20130312
  Transmission Date: 20140127
  Serious: Yes (Hospitalization, Other)
  Sender: FDA-Public Use
  Company Number: US-ABBOTT-12P-163-0934296-00

PATIENT
  Age: 68 None
  Sex: Female

DRUGS (6)
  1. HUMIRA [Suspect]
     Indication: PRODUCT USED FOR UNKNOWN INDICATION
  2. MELOXICAM [Concomitant]
     Indication: ARTHRITIS
  3. LISINOPRIL [Concomitant]
     Indication: ATRIAL FIBRILLATION
  4. METOPROLOL [Concomitant]
     Indication: ATRIAL FIBRILLATION
  5. COUMADIN [Concomitant]
     Indication: ATRIAL FIBRILLATION
     Dosage: MON, WED, FRI
  6. COUMADIN [Concomitant]
     Dosage: SAT, SUN, TUES, THURS

REACTIONS (7)
  - Asthenia [Recovered/Resolved]
  - Abasia [Recovered/Resolved]
  - Dyspnoea [Recovered/Resolved]
  - Bone marrow failure [Unknown]
  - Gastric ulcer haemorrhage [Recovered/Resolved]
  - Haemoglobin decreased [Not Recovered/Not Resolved]
  - Anaemia [Not Recovered/Not Resolved]
